FAERS Safety Report 11078672 (Version 1)
Quarter: 2015Q2

REPORT INFORMATION
  Report Type: Spontaneous
  Country: US (occurrence: None)
  Receive Date: 20150428
  Receipt Date: 20150428
  Transmission Date: 20150821
  Serious: Yes (Other)
  Sender: FDA-Public Use
  Company Number: IPC201504-000224

PATIENT
  Age: 54 Year
  Sex: Male

DRUGS (1)
  1. ALLOPURINOL (ALLOPURINOL) (ALLOPURINOL) [Suspect]
     Active Substance: ALLOPURINOL
     Indication: GOUT
     Dosage: - STOPPED

REACTIONS (2)
  - Lichen myxoedematosus [None]
  - Granuloma annulare [None]
